FAERS Safety Report 22587338 (Version 3)
Quarter: 2023Q4

REPORT INFORMATION
  Report Type: Report from Study
  Country: CA (occurrence: CA)
  Receive Date: 20230612
  Receipt Date: 20231227
  Transmission Date: 20240110
  Serious: Yes (Other)
  Sender: FDA-Public Use
  Company Number: CA-CELLTRION INC.-2023CA011671

PATIENT

DRUGS (9)
  1. RITUXIMAB [Suspect]
     Active Substance: RITUXIMAB
     Indication: Rheumatoid arthritis
     Dosage: 1000 MILLIGRAM
     Route: 042
  2. AMITRIPTYLINE [Concomitant]
     Active Substance: AMITRIPTYLINE
  3. ATENOLOL [Concomitant]
     Active Substance: ATENOLOL
  4. FOLIC ACID [Concomitant]
     Active Substance: FOLIC ACID
  5. HYDROMORPHONE [Concomitant]
     Active Substance: HYDROMORPHONE
  6. METHOTREXATE [Concomitant]
     Active Substance: METHOTREXATE
     Route: 048
  7. NAPROXEN [Concomitant]
     Active Substance: NAPROXEN
  8. TYLENOL [Concomitant]
     Active Substance: ACETAMINOPHEN
     Indication: Rheumatoid arthritis
  9. TRELEGY ELLIPTA [Concomitant]
     Active Substance: FLUTICASONE FUROATE\UMECLIDINIUM BROMIDE\VILANTEROL TRIFENATATE

REACTIONS (8)
  - Decreased appetite [Recovered/Resolved]
  - Hernia [Recovered/Resolved]
  - Renal mass [Recovered/Resolved]
  - Splenic thrombosis [Recovered/Resolved]
  - Weight decreased [Recovered/Resolved]
  - Respiratory syncytial virus test positive [Recovered/Resolved]
  - COVID-19 [Recovered/Resolved]
  - Illness [Recovered/Resolved]
